FAERS Safety Report 9336340 (Version 2)
Quarter: 2013Q2

REPORT INFORMATION
  Report Type: Spontaneous
  Country: US (occurrence: US)
  Receive Date: 20130607
  Receipt Date: 20130625
  Transmission Date: 20140414
  Serious: Yes (Hospitalization)
  Sender: FDA-Public Use
  Company Number: US-LUNDBECK-DKLU1091210

PATIENT
  Age: 2 Year
  Sex: Female

DRUGS (3)
  1. SABRIL (TABLET) [Suspect]
     Indication: CONVULSION
     Dates: start: 201209
  2. SABRIL (TABLET) [Suspect]
     Indication: INFANTILE SPASMS
     Dosage: DOSE INCREASED
     Dates: start: 201301
  3. SABRIL (TABLET) [Suspect]

REACTIONS (5)
  - General physical health deterioration [Unknown]
  - Crying [Unknown]
  - Screaming [Unknown]
  - Pain [Unknown]
  - Urinary tract infection [Unknown]
